FAERS Safety Report 19400935 (Version 2)
Quarter: 2021Q2

REPORT INFORMATION
  Report Type: Spontaneous
  Country: CN (occurrence: CN)
  Receive Date: 20210611
  Receipt Date: 20210615
  Transmission Date: 20210717
  Serious: Yes (Other)
  Sender: FDA-Public Use
  Company Number: CN-ASTRAZENECA-2021A498326

PATIENT

DRUGS (3)
  1. TAGRISSO [Suspect]
     Active Substance: OSIMERTINIB
     Indication: LUNG NEOPLASM MALIGNANT
     Route: 048
  2. IRESSA [Suspect]
     Active Substance: GEFITINIB
     Route: 048
  3. TAGRISSO [Suspect]
     Active Substance: OSIMERTINIB
     Indication: LUNG NEOPLASM MALIGNANT
     Route: 048

REACTIONS (9)
  - Muscular weakness [Unknown]
  - Decreased appetite [Unknown]
  - Product use issue [Unknown]
  - Drug resistance [Unknown]
  - Pruritus [Unknown]
  - Listless [Unknown]
  - Eczema [Unknown]
  - Metastases to central nervous system [Unknown]
  - Mouth ulceration [Unknown]
